FAERS Safety Report 13877677 (Version 2)
Quarter: 2017Q3

REPORT INFORMATION
  Report Type: Spontaneous
  Country: CH (occurrence: CH)
  Receive Date: 20170817
  Receipt Date: 20170829
  Transmission Date: 20171127
  Serious: Yes (Hospitalization, Other)
  Sender: FDA-Public Use
  Company Number: CH-PFIZER INC-2017353449

PATIENT
  Age: 56 Year
  Sex: Female

DRUGS (8)
  1. SOLU-MEDROL [Suspect]
     Active Substance: METHYLPREDNISOLONE SODIUM SUCCINATE
     Indication: URTICARIAL VASCULITIS
     Dosage: 125 MG, UNK
     Route: 042
     Dates: start: 20170302
  2. PREDNISON GALEPHARM [Suspect]
     Active Substance: PREDNISONE
     Dosage: 70 MG, 1X/DAY
     Dates: start: 20170302, end: 20170302
  3. ZADITEN [Concomitant]
     Active Substance: KETOTIFEN FUMARATE
     Dosage: 2 MG, UNK
  4. POLIDOCANOL [Concomitant]
     Active Substance: POLIDOCANOL
     Indication: URTICARIAL VASCULITIS
     Dosage: UNK
     Route: 061
     Dates: start: 20170228
  5. FEXOFENADINE [Concomitant]
     Active Substance: FEXOFENADINE\FEXOFENADINE HYDROCHLORIDE
     Indication: URTICARIAL VASCULITIS
     Dosage: 180MG 4X/DAY (1-1-1-1)
     Route: 048
     Dates: start: 20170228
  6. VENTOLIN [Concomitant]
     Active Substance: ALBUTEROL SULFATE
     Indication: URTICARIAL VASCULITIS
     Dosage: 100 UG, DOSE FOR INHALATION
     Route: 055
     Dates: start: 20170228
  7. PREDNISON GALEPHARM [Suspect]
     Active Substance: PREDNISONE
     Dosage: 75 MG, 1X/DAY
     Route: 048
     Dates: start: 20170228
  8. TRIAMCINOLON /00031901/ [Concomitant]
     Indication: URTICARIAL VASCULITIS
     Dosage: UNK
     Route: 061
     Dates: start: 20170228

REACTIONS (1)
  - Diabetes mellitus [Recovering/Resolving]

NARRATIVE: CASE EVENT DATE: 20170302
